FAERS Safety Report 4285612-0 (Version None)
Quarter: 2004Q1

REPORT INFORMATION
  Report Type: 
  Country: None (occurrence: None)
  Receive Date: 20040203
  Receipt Date: 20040120
  Transmission Date: 20041129
  Serious: Yes (Other)
  Sender: FDA-Public Use
  Company Number: ES-JNJFOC-20040104309

PATIENT
  Age: 62 Year
  Sex: Female

DRUGS (4)
  1. TOPAMAX [Suspect]
     Indication: MIGRAINE
     Dosage: 25 MG, ORAL; 50 MG
     Route: 048
     Dates: start: 20031023, end: 20031120
  2. TOPAMAX [Suspect]
     Indication: MIGRAINE
     Dosage: 25 MG, ORAL; 50 MG
     Route: 048
     Dates: start: 20030403
  3. AMERIDE (TABLETS) MODURETIC [Concomitant]
  4. TIADIPONA (TABLETS) BENTAZEPAM [Concomitant]

REACTIONS (2)
  - BILIARY COLIC [None]
  - NAUSEA [None]
